FAERS Safety Report 8229201-1 (Version None)
Quarter: 2012Q1

REPORT INFORMATION
  Report Type: 
  Country: None (occurrence: None)
  Receive Date: 20120322
  Receipt Date: 20120311
  Transmission Date: 20120608
  Serious: Yes (Other)
  Sender: FDA-Public Use
  Company Number: CA-SHIRE-ALL1-2012-01402

PATIENT
  Age: 75 Year
  Sex: Female

DRUGS (1)
  1. FOSRENOL [Suspect]
     Indication: HYPERPHOSPHATAEMIA
     Dosage: 500 MG, 3X/DAY:TID
     Route: 048

REACTIONS (5)
  - DELIRIUM [None]
  - CONFUSIONAL STATE [None]
  - FAECALOMA [None]
  - PERSONALITY CHANGE [None]
  - DRUG LEVEL INCREASED [None]
